FAERS Safety Report 5025927-1 (Version None)
Quarter: 2006Q2

REPORT INFORMATION
  Report Type: 
  Country: None (occurrence: None)
  Receive Date: 20060614
  Receipt Date: 20060421
  Transmission Date: 20061013
  Serious: Yes (Hospitalization)
  Sender: FDA-Public Use
  Company Number: JP-JPN-A200601328

PATIENT
  Age: 3 Year
  Sex: Female
  Weight: 11 kg

DRUGS (2)
  1. AUGMENTIN '125' [Suspect]
     Indication: OTITIS MEDIA ACUTE
     Dosage: .75MG TWICE PER DAY
     Route: 048
     Dates: start: 20060329, end: 20060329
  2. BIOFERMIN R [Concomitant]
     Indication: DRUG USE FOR UNKNOWN INDICATION
     Dosage: 1.25G PER DAY
     Route: 048
     Dates: start: 20060329, end: 20060329

REACTIONS (2)
  - HYPOGLYCAEMIA [None]
  - SOMNOLENCE [None]
